FAERS Safety Report 4354293-X (Version None)
Quarter: 2004Q2

REPORT INFORMATION
  Report Type: 
  Country: None (occurrence: None)
  Receive Date: 20040503
  Receipt Date: 20030428
  Transmission Date: 20050107
  Serious: Yes (Other)
  Sender: FDA-Public Use
  Company Number: PHEH2003US03095

PATIENT
  Age: 51 Year
  Sex: Male
  Weight: 85.7 kg

DRUGS (4)
  1. DIOVAN HCT [Suspect]
     Indication: HYPERTENSION
     Dosage: ORAL
     Route: 048
     Dates: start: 20010919, end: 20030411
  2. GLUCOPHAG [Concomitant]
  3. CLUCOTROL XL (GILIPIZIDE) [Concomitant]
  4. ASPIRIN [Concomitant]

REACTIONS (1)
  - ANGIONEUROTIC OEDEMA [None]
